FAERS Safety Report 9576394 (Version 1)
Quarter: 2013Q4

REPORT INFORMATION
  Report Type: Spontaneous
  Country: US (occurrence: US)
  Receive Date: 20131001
  Receipt Date: 20131001
  Transmission Date: 20140711
  Serious: No
  Sender: FDA-Public Use
  Company Number: US-AMGEN-USASP2013002587

PATIENT
  Age: 58 Year
  Sex: Female
  Weight: 74.83 kg

DRUGS (11)
  1. ENBREL [Suspect]
     Indication: RHEUMATOID ARTHRITIS
     Dosage: 50 MG, QWK
     Route: 058
  2. ZYRTEC [Concomitant]
     Dosage: 10 MG, UNK
  3. OMEPRAZOLE [Concomitant]
     Dosage: 10 MG, UNK
  4. GABAPENTIN [Concomitant]
     Dosage: 600 MG, UNK
  5. VITAMIN D                          /00107901/ [Concomitant]
     Dosage: 1000 UNIT, UNK
  6. ALEVE [Concomitant]
     Dosage: 220 MG, UNK
  7. CALCIUM [Concomitant]
     Dosage: 500 UNK, UNK
  8. VITAMIN B12                        /00056201/ [Concomitant]
     Dosage: 1000 CR
  9. MULTIVITAMINS, PLAIN [Concomitant]
     Dosage: UNK
  10. CRANBERRY                          /01512301/ [Concomitant]
     Dosage: UNK
  11. GLUCOSAMINE CHONDROITIN            /01625901/ [Concomitant]
     Dosage: 500-400

REACTIONS (2)
  - Mouth ulceration [Unknown]
  - Skin ulcer [Unknown]
